FAERS Safety Report 5616235-6 (Version None)
Quarter: 2008Q1

REPORT INFORMATION
  Report Type: 
  Country: None (occurrence: None)
  Receive Date: 20080205
  Receipt Date: 20071112
  Transmission Date: 20080703
  Serious: Yes (Other)
  Sender: FDA-Public Use
  Company Number: 2007EU002647

PATIENT
  Age: 26 Year
  Sex: Female

DRUGS (8)
  1. TACROLIMUS [Suspect]
     Indication: RENAL TRANSPLANT
     Dosage: 1.5 MG, BID,; 1.5 MG, UID/QD,
     Dates: start: 20010101
  2. TACROLIMUS [Suspect]
     Indication: RENAL TRANSPLANT
     Dosage: 1.5 MG, BID,; 1.5 MG, UID/QD,
     Dates: start: 20060101
  3. ZOLMITRIPTAN           (ZOLMITRIPTAN) [Suspect]
     Indication: MIGRAINE
     Dosage: 10 DF, WEEKLY,; 2.5 MG, OTHER,
     Dates: start: 20050901
  4. ZOLMITRIPTAN           (ZOLMITRIPTAN) [Suspect]
     Indication: MIGRAINE
     Dosage: 10 DF, WEEKLY,; 2.5 MG, OTHER,
     Dates: start: 20051001
  5. MYCOPHENOLATE MOFETIL [Concomitant]
  6. PREDNISOLONE ACETATE [Concomitant]
  7. CONTRACEPTIVES NOS [Concomitant]
  8. MAGNESIUM [Concomitant]

REACTIONS (11)
  - COMPLICATIONS OF TRANSPLANTED KIDNEY [None]
  - DRUG INTERACTION [None]
  - DRUG TOXICITY [None]
  - KIDNEY FIBROSIS [None]
  - MIGRAINE [None]
  - NEPHROLITHIASIS [None]
  - RENAL ARTERIOSCLEROSIS [None]
  - RENAL IMPAIRMENT [None]
  - RENAL ISCHAEMIA [None]
  - RENAL TUBULAR NECROSIS [None]
  - RESPIRATORY TRACT INFECTION [None]
